FAERS Safety Report 18708684 (Version 1)
Quarter: 2021Q1

REPORT INFORMATION
  Report Type: Spontaneous
  Country: FR (occurrence: FR)
  Receive Date: 20210106
  Receipt Date: 20210106
  Transmission Date: 20210419
  Serious: Yes (Other)
  Sender: FDA-Public Use
  Company Number: FR-TEVA-2020-FR-1864894

PATIENT
  Age: 20 Year
  Sex: Female

DRUGS (1)
  1. AMOXICILLINE [Suspect]
     Active Substance: AMOXICILLIN
     Indication: PRODUCT USED FOR UNKNOWN INDICATION
     Dosage: NOT KNOWN
     Route: 048

REACTIONS (3)
  - Type I hypersensitivity [Recovered/Resolved]
  - Drug intolerance [Recovered/Resolved]
  - Rash [Recovered/Resolved]
